FAERS Safety Report 8438356-5 (Version None)
Quarter: 2012Q2

REPORT INFORMATION
  Report Type: 
  Country: None (occurrence: None)
  Receive Date: 20120614
  Receipt Date: 20120611
  Transmission Date: 20120825
  Serious: Yes (Hospitalization)
  Sender: FDA-Public Use
  Company Number: US-AMGEN-USASP2012025147

PATIENT
  Age: 85 Year
  Sex: Female
  Weight: 67.12 kg

DRUGS (8)
  1. METOPROLOL [Concomitant]
     Indication: HYPERTENSION
     Dosage: 100 MG, QD
     Route: 048
  2. AMLODIPINE [Concomitant]
     Indication: HYPERTENSION
     Dosage: 10 UNK, UNK
     Route: 048
  3. LASIX [Concomitant]
     Indication: OEDEMA
     Dosage: 20 UNK, UNK
     Route: 048
  4. SIMVASTATIN [Concomitant]
  5. PROTONIX [Concomitant]
     Dosage: 40 UNK, UNK
     Route: 048
  6. TRAMADOL HCL [Concomitant]
     Dosage: 50 MG, PRN
  7. PROLIA [Suspect]
     Indication: OSTEOPOROSIS POSTMENOPAUSAL
     Dosage: 60 MG, Q6MO
     Route: 058
     Dates: start: 20111115, end: 20111115
  8. METACLOPRAMIDE [Concomitant]
     Dosage: 10 UNK, UNK
     Route: 048

REACTIONS (4)
  - INFUSION SITE REACTION [None]
  - INTERSTITIAL LUNG DISEASE [None]
  - HYPOXIA [None]
  - INFUSION SITE DISCOMFORT [None]
